FAERS Safety Report 12882637 (Version 3)
Quarter: 2016Q4

REPORT INFORMATION
  Report Type: Spontaneous
  Country: US (occurrence: US)
  Receive Date: 20161025
  Receipt Date: 20161110
  Transmission Date: 20170207
  Serious: Yes (Other)
  Sender: FDA-Public Use
  Company Number: US-NAPPMUNDI-USA-2016-0134320

PATIENT
  Sex: Female

DRUGS (3)
  1. OXYCODONE HYDROCHLORIDE. [Suspect]
     Active Substance: OXYCODONE HYDROCHLORIDE
     Indication: BREAKTHROUGH PAIN
     Dosage: 20 MG, BID
     Route: 048
  2. OXYCODONE HYDROCHLORIDE (SIMILAR TO NDA 22-272) [Suspect]
     Active Substance: OXYCODONE HYDROCHLORIDE
     Indication: PAIN
     Dosage: 5 X 20 MG, DAILY
     Route: 048
  3. OXYCONTIN [Suspect]
     Active Substance: OXYCODONE HYDROCHLORIDE
     Indication: PAIN
     Dosage: 30 MG, BID
     Route: 048

REACTIONS (11)
  - Therapeutic response unexpected [Unknown]
  - Duodenal ulcer [Unknown]
  - Pancreatic disorder [Unknown]
  - Pain [Unknown]
  - Memory impairment [Unknown]
  - Malaise [Unknown]
  - Depression [Unknown]
  - Abdominal pain upper [Unknown]
  - Unevaluable event [Unknown]
  - Gastritis [Unknown]
  - Brain injury [Unknown]

NARRATIVE: CASE EVENT DATE: 2015
